FAERS Safety Report 9503043 (Version 2)
Quarter: 2013Q3

REPORT INFORMATION
  Report Type: Report from Study
  Country: PL (occurrence: PL)
  Receive Date: 20130906
  Receipt Date: 20130906
  Transmission Date: 20140515
  Serious: Yes (Life-Threatening, Hospitalization)
  Sender: FDA-Public Use
  Company Number: PHHO2012PL010615

PATIENT
  Age: 68 Year
  Sex: Male
  Weight: 66 kg

DRUGS (7)
  1. ALISKIREN [Suspect]
     Indication: CORONARY ARTERY DISEASE
     Dosage: 300 MG, UNK
     Route: 048
     Dates: start: 20100715
  2. ALISKIREN [Suspect]
     Dosage: 150 MG, UNK
  3. ASA [Concomitant]
     Indication: CORONARY ARTERY DISEASE
     Dates: start: 2000
  4. RAMIPRIL [Concomitant]
     Indication: HYPERTENSION
     Dates: start: 2008
  5. METOPROLOL [Concomitant]
     Indication: CORONARY ARTERY DISEASE
     Dates: start: 2008
  6. SIMVASTATIN [Concomitant]
     Indication: HYPERCHOLESTEROLAEMIA
     Dates: start: 2008
  7. HEPARIN [Concomitant]
     Dates: start: 20120716, end: 20120716

REACTIONS (1)
  - Coronary artery embolism [Recovered/Resolved]
